FAERS Safety Report 21396123 (Version 1)
Quarter: 2022Q3

REPORT INFORMATION
  Report Type: Spontaneous
  Country: US (occurrence: None)
  Receive Date: 20220928
  Receipt Date: 20220928
  Transmission Date: 20221027
  Serious: No
  Sender: FDA-Public Use
  Company Number: None

PATIENT
  Sex: Female

DRUGS (1)
  1. FORTEO [Suspect]
     Active Substance: TERIPARATIDE
     Indication: Senile osteoporosis
     Dosage: 250MCG/ML DAILY SUBCUTANEOUS? ?
     Route: 058
     Dates: start: 202207

REACTIONS (2)
  - Ischaemic stroke [None]
  - Therapy interrupted [None]
